FAERS Safety Report 23561739 (Version 2)
Quarter: 2024Q3

REPORT INFORMATION
  Report Type: Report from Study
  Country: US (occurrence: US)
  Receive Date: 20240225
  Receipt Date: 20240814
  Transmission Date: 20241017
  Serious: Yes (Other)
  Sender: ABBVIE
  Company Number: US-ABBVIE-5650339

PATIENT
  Age: 56 Year
  Sex: Female

DRUGS (2)
  1. HUMIRA [Suspect]
     Active Substance: ADALIMUMAB
     Indication: Rheumatoid arthritis
     Dosage: FORM STRENGTH: 40 MILLIGRAM
     Route: 058
     Dates: start: 20211104, end: 202111
  2. HUMIRA [Suspect]
     Active Substance: ADALIMUMAB
     Dosage: FORM STRENGTH: 40 MILLIGRAM
     Route: 058
     Dates: start: 202111

REACTIONS (12)
  - Loss of consciousness [Unknown]
  - Pain [Unknown]
  - Fall [Recovering/Resolving]
  - Cataract [Unknown]
  - Erythema [Unknown]
  - Contusion [Unknown]
  - Spinal fracture [Unknown]
  - Dizziness [Unknown]
  - Neck injury [Unknown]
  - Sleep deficit [Unknown]
  - Fall [Unknown]
  - Spinal operation [Recovering/Resolving]

NARRATIVE: CASE EVENT DATE: 20231101
